FAERS Safety Report 8492460-4 (Version None)
Quarter: 2012Q3

REPORT INFORMATION
  Report Type: 
  Country: None (occurrence: None)
  Receive Date: 20120706
  Receipt Date: 20120703
  Transmission Date: 20120928
  Serious: Yes (Other)
  Sender: FDA-Public Use
  Company Number: DE-TEVA-346740USA

PATIENT
  Sex: Female

DRUGS (2)
  1. MABTHERA [Concomitant]
     Indication: EXTRANODAL MARGINAL ZONE B-CELL LYMPHOMA (MALT TYPE)
     Dates: start: 20120613
  2. TREANDA [Suspect]
     Indication: EXTRANODAL MARGINAL ZONE B-CELL LYMPHOMA (MALT TYPE)
     Route: 042
     Dates: start: 20120613

REACTIONS (3)
  - HYPOTENSION [None]
  - CARDIOVASCULAR DISORDER [None]
  - SYNCOPE [None]
